FAERS Safety Report 4686885-2 (Version None)
Quarter: 2005Q2

REPORT INFORMATION
  Report Type: 
  Country: None (occurrence: None)
  Receive Date: 20050609
  Receipt Date: 20050601
  Transmission Date: 20051028
  Serious: Yes (Hospitalization)
  Sender: FDA-Public Use
  Company Number: US-MERCK-0506USA00571

PATIENT
  Age: 16 Year
  Sex: Male

DRUGS (8)
  1. COGENTIN [Suspect]
     Route: 048
  2. RISPERIDONE [Suspect]
     Route: 065
  3. DEPAKOTE [Concomitant]
     Route: 065
  4. DEPAKOTE [Concomitant]
     Route: 065
  5. CLONIDINE [Concomitant]
     Route: 065
  6. CLONIDINE [Concomitant]
     Route: 048
  7. CLONAZEPAM [Concomitant]
     Route: 065
  8. CLARITIN-D [Concomitant]
     Route: 065

REACTIONS (2)
  - AGGRESSION [None]
  - TARDIVE DYSKINESIA [None]
